FAERS Safety Report 9635008 (Version 2)
Quarter: 2013Q4

REPORT INFORMATION
  Report Type: Spontaneous
  Country: FR (occurrence: FR)
  Receive Date: 20131021
  Receipt Date: 20131202
  Transmission Date: 20140711
  Serious: Yes (Other)
  Sender: FDA-Public Use
  Company Number: FR-PFIZER INC-2013296956

PATIENT
  Age: 17 Year
  Sex: Female

DRUGS (9)
  1. PRODILANTIN [Suspect]
     Dosage: UNK
     Route: 042
     Dates: start: 20130626, end: 20130628
  2. PRODILANTIN [Suspect]
     Dosage: UNK
     Dates: start: 20130707
  3. PRODILANTIN [Suspect]
     Dosage: UNK
     Route: 040
     Dates: start: 20130724, end: 20130724
  4. PRODILANTIN [Suspect]
     Dosage: UNK
     Route: 040
     Dates: start: 20130727, end: 20130728
  5. VALPROATE SODIUM AGUETTANT [Suspect]
     Dosage: 0.7 ML/KG
     Route: 042
     Dates: start: 20130630, end: 20130705
  6. LAMOTRIGINE ARROW [Suspect]
     Dosage: UNK
     Route: 048
     Dates: start: 20130628, end: 20130630
  7. VALIUM [Suspect]
     Dosage: UNK
     Dates: start: 20130626, end: 20130725
  8. DI-HYDAN [Suspect]
     Dosage: UNK
     Dates: start: 20130703, end: 20130725
  9. URBANYL [Suspect]
     Dosage: UNK
     Dates: start: 20130703, end: 20130705

REACTIONS (5)
  - Drug reaction with eosinophilia and systemic symptoms [Recovering/Resolving]
  - Rash morbilliform [Recovering/Resolving]
  - Face oedema [Recovering/Resolving]
  - Eyelid oedema [Recovering/Resolving]
  - Rash papular [Recovering/Resolving]
